FAERS Safety Report 9915158 (Version 5)
Quarter: 2014Q1

REPORT INFORMATION
  Report Type: Report from Study
  Country: ES (occurrence: ES)
  Receive Date: 20140220
  Receipt Date: 20140311
  Transmission Date: 20141002
  Serious: Yes (Hospitalization, Disabling)
  Sender: FDA-Public Use
  Company Number: PHHO2014ES001883

PATIENT
  Sex: 0

DRUGS (2)
  1. LDK378 [Suspect]
     Indication: NON-SMALL CELL LUNG CANCER
     Dosage: 450 MG, UNK
     Route: 048
     Dates: start: 20131107, end: 20140114
  2. METOCLOPRAMIDE [Suspect]
     Dosage: 60 MG, QD
     Dates: start: 201308, end: 20140121

REACTIONS (1)
  - Parkinsonism [Recovering/Resolving]
